FAERS Safety Report 21936815 (Version 1)
Quarter: 2023Q1

REPORT INFORMATION
  Report Type: Spontaneous
  Country: US (occurrence: US)
  Receive Date: 20230201
  Receipt Date: 20230201
  Transmission Date: 20230418
  Serious: No
  Sender: FDA-Public Use
  Company Number: US-PFIZER INC-202300043018

PATIENT
  Age: 62 Year

DRUGS (5)
  1. PAXLOVID [Suspect]
     Active Substance: NIRMATRELVIR\RITONAVIR
     Indication: COVID-19 treatment
     Dosage: UNK
     Dates: start: 20230117, end: 20230122
  2. ARMOUR THYROID (ACTIVIS) [Concomitant]
     Dosage: UNK
  3. VITAMIN B12 [WEGMAN^S] [Concomitant]
     Indication: Vitamin supplementation
     Dosage: UNK
  4. WOMENS MULTIVITAMIN (WEGMAN^S) [Concomitant]
     Dosage: UNK
  5. AUGMENTIN (MICROLABS) [Concomitant]
     Dosage: UNK
     Dates: start: 20230112, end: 20230116

REACTIONS (5)
  - Abdominal discomfort [Recovered/Resolved]
  - Gastrooesophageal reflux disease [Recovered/Resolved]
  - Vomiting [Recovered/Resolved]
  - Diarrhoea [Recovered/Resolved]
  - Dysgeusia [Recovered/Resolved]

NARRATIVE: CASE EVENT DATE: 20230117
